FAERS Safety Report 5204970-3 (Version None)
Quarter: 2007Q1

REPORT INFORMATION
  Report Type: 
  Country: None (occurrence: None)
  Receive Date: 20070110
  Receipt Date: 20061031
  Transmission Date: 20070707
  Serious: Yes (Other)
  Sender: FDA-Public Use
  Company Number: US-BRISTOL-MYERS SQUIBB COMPANY-13514070

PATIENT
  Age: 47 Year
  Sex: Female
  Weight: 63 kg

DRUGS (3)
  1. ABILIFY [Suspect]
     Indication: BIPOLAR DISORDER
     Route: 048
     Dates: start: 20060623, end: 20060707
  2. METHADONE HCL [Concomitant]
     Route: 048
  3. LORAZEPAM [Concomitant]
     Dates: start: 20060623

REACTIONS (2)
  - PAIN IN EXTREMITY [None]
  - PARALYSIS [None]
